FAERS Safety Report 24777952 (Version 2)
Quarter: 2025Q1

REPORT INFORMATION
  Report Type: Spontaneous
  Country: US (occurrence: US)
  Receive Date: 20241226
  Receipt Date: 20250113
  Transmission Date: 20250408
  Serious: Yes (Other)
  Sender: AMGEN
  Company Number: US-AMGEN-USASP2024248952

PATIENT
  Sex: Female
  Weight: 91.61 kg

DRUGS (9)
  1. XGEVA [Suspect]
     Active Substance: DENOSUMAB
     Indication: Brain cancer metastatic
     Dosage: UNK, Q3MO
     Route: 065
  2. XGEVA [Suspect]
     Active Substance: DENOSUMAB
     Indication: Metastases to central nervous system
  3. XGEVA [Suspect]
     Active Substance: DENOSUMAB
     Indication: Metastases to bone
  4. IBRANCE [Suspect]
     Active Substance: PALBOCICLIB
     Indication: Breast cancer metastatic
     Dosage: UNK QD (MOUTH)
     Route: 048
     Dates: start: 202101
  5. IBRANCE [Suspect]
     Active Substance: PALBOCICLIB
     Indication: Metastases to central nervous system
     Dosage: 100 MILLIGRAM, QD (MOUTH)
     Route: 048
     Dates: start: 20230808
  6. IBRANCE [Suspect]
     Active Substance: PALBOCICLIB
     Indication: Metastases to bone
     Dosage: 100 MILLIGRAM, QD (DAYS 1 THROUGH 21 EVERY)
     Route: 048
     Dates: start: 20240312
  7. ANASTROZOLE [Suspect]
     Active Substance: ANASTROZOLE
     Indication: Brain cancer metastatic
     Dosage: 1 MILLIGRAM, QD
     Route: 048
  8. ANASTROZOLE [Suspect]
     Active Substance: ANASTROZOLE
     Indication: Metastases to central nervous system
  9. ANASTROZOLE [Suspect]
     Active Substance: ANASTROZOLE
     Indication: Metastases to bone

REACTIONS (7)
  - Gallbladder disorder [Unknown]
  - Seizure [Unknown]
  - Oophorectomy bilateral [Unknown]
  - Wrist surgery [Unknown]
  - Anxiety [Unknown]
  - Off label use [Unknown]
  - Fatigue [Unknown]

NARRATIVE: CASE EVENT DATE: 20210201
